FAERS Safety Report 11123212 (Version 1)
Quarter: 2015Q2

REPORT INFORMATION
  Report Type: Spontaneous
  Country: US (occurrence: US)
  Receive Date: 20150519
  Receipt Date: 20150519
  Transmission Date: 20150821
  Serious: Yes (Hospitalization)
  Sender: FDA-Public Use
  Company Number: US-ENDO PHARMACEUTICALS INC.-201412021

PATIENT
  Age: 76 Year
  Sex: Male
  Weight: 90.8 kg

DRUGS (2)
  1. TESTOPEL [Suspect]
     Active Substance: TESTOSTERONE
     Indication: HYPOGONADISM
     Route: 058
     Dates: start: 201202, end: 201301
  2. TESTOSTERONE CYPIONATE. [Suspect]
     Active Substance: TESTOSTERONE CYPIONATE
     Indication: BLOOD TESTOSTERONE DECREASED
     Route: 065
     Dates: start: 201112

REACTIONS (5)
  - Aortic stenosis [Unknown]
  - Cerebrovascular accident [Not Recovered/Not Resolved]
  - Acute myocardial infarction [Unknown]
  - Coronary artery disease [Unknown]
  - Polycythaemia [Unknown]

NARRATIVE: CASE EVENT DATE: 20120407
